FAERS Safety Report 6399016-8 (Version None)
Quarter: 2009Q4

REPORT INFORMATION
  Report Type: 
  Country: None (occurrence: None)
  Receive Date: 20091013
  Receipt Date: 20091007
  Transmission Date: 20100525
  Serious: Yes (Hospitalization)
  Sender: FDA-Public Use
  Company Number: US-GILEAD-2009-0024683

PATIENT
  Sex: Female
  Weight: 77.18 kg

DRUGS (10)
  1. LETAIRIS [Suspect]
     Indication: PULMONARY ARTERIAL HYPERTENSION
     Route: 048
     Dates: start: 20090730, end: 20091007
  2. LASIX [Concomitant]
  3. TORSEMIDE [Concomitant]
  4. ALDACTONE [Concomitant]
  5. NORVASC [Concomitant]
  6. LACTULOSE [Concomitant]
  7. ALBUTEROL [Concomitant]
  8. ADVAIR DISKUS 100/50 [Concomitant]
  9. CIPROFLOXACIN HYDROCHLORIDE [Concomitant]
  10. NEXIUM [Concomitant]

REACTIONS (2)
  - CONDITION AGGRAVATED [None]
  - FLUID RETENTION [None]
